FAERS Safety Report 22165906 (Version 1)
Quarter: 2023Q1

REPORT INFORMATION
  Report Type: Spontaneous
  Country: US (occurrence: None)
  Receive Date: 20230331
  Receipt Date: 20230331
  Transmission Date: 20230417
  Serious: Yes (unspecified)
  Sender: FDA-Public Use
  Company Number: None

PATIENT
  Age: 81 Year
  Sex: Female
  Weight: 44 kg

DRUGS (2)
  1. ALFENTANIL [Suspect]
     Active Substance: ALFENTANIL
  2. LIDOCAINE [Suspect]
     Active Substance: LIDOCAINE

REACTIONS (8)
  - Supraventricular tachycardia [None]
  - Hypertension [None]
  - Mental status changes [None]
  - Tremor [None]
  - Muscle rigidity [None]
  - Seizure [None]
  - Postictal state [None]
  - Nystagmus [None]

NARRATIVE: CASE EVENT DATE: 20230327
